FAERS Safety Report 15248220 (Version 1)
Quarter: 2018Q3

REPORT INFORMATION
  Report Type: Spontaneous
  Country: US (occurrence: US)
  Receive Date: 20180807
  Receipt Date: 20180807
  Transmission Date: 20181010
  Serious: Yes (Other)
  Sender: FDA-Public Use
  Company Number: US-PHARMING-PHAUS2018000508

PATIENT

DRUGS (10)
  1. SODIUM CHLORIDE. [Concomitant]
     Active Substance: SODIUM CHLORIDE
  2. STERILE WATER [Concomitant]
     Active Substance: WATER
  3. ZOFRAN [Concomitant]
     Active Substance: ONDANSETRON HYDROCHLORIDE
  4. MIRALAX [Concomitant]
     Active Substance: POLYETHYLENE GLYCOL 3350
  5. HEPARIN [Concomitant]
     Active Substance: HEPARIN SODIUM
  6. CELEXA [Concomitant]
     Active Substance: CITALOPRAM HYDROBROMIDE
  7. RUCONEST [Suspect]
     Active Substance: HUMAN C1-ESTERASE INHIBITOR
     Indication: HEREDITARY ANGIOEDEMA
     Dosage: 2800 IU, AS NEEDED
     Route: 042
     Dates: start: 20180606
  8. EPINEPHRINE. [Concomitant]
     Active Substance: EPINEPHRINE
  9. MELATONIN [Concomitant]
     Active Substance: MELATONIN
  10. ESTRACE [Concomitant]
     Active Substance: ESTRADIOL

REACTIONS (1)
  - Hereditary angioedema [Unknown]

NARRATIVE: CASE EVENT DATE: 20180719
